FAERS Safety Report 14987766 (Version 1)
Quarter: 2018Q2

REPORT INFORMATION
  Report Type: Spontaneous
  Country: GB (occurrence: GB)
  Receive Date: 20180608
  Receipt Date: 20180608
  Transmission Date: 20180711
  Serious: Yes (Other)
  Sender: FDA-Public Use
  Company Number: GB-TEVA-2018-GB-902788

PATIENT
  Age: 79 Year
  Sex: Male
  Weight: 81 kg

DRUGS (6)
  1. SIMVASTATIN. [Concomitant]
     Active Substance: SIMVASTATIN
  2. LANSOPRAZOLE. [Suspect]
     Active Substance: LANSOPRAZOLE
     Indication: HIATUS HERNIA
     Route: 048
     Dates: start: 20100101, end: 20171215
  3. TIOTROPIUM [Concomitant]
     Active Substance: TIOTROPIUM
  4. ZOPICLONE [Concomitant]
     Active Substance: ZOPICLONE
  5. FLECAINIDE [Concomitant]
     Active Substance: FLECAINIDE
  6. WARFARIN [Concomitant]
     Active Substance: WARFARIN

REACTIONS (1)
  - Renal failure [Not Recovered/Not Resolved]

NARRATIVE: CASE EVENT DATE: 20171123
